FAERS Safety Report 7117821-7 (Version None)
Quarter: 2010Q4

REPORT INFORMATION
  Report Type: 
  Country: None (occurrence: None)
  Receive Date: 20101118
  Receipt Date: 20101118
  Transmission Date: 20110411
  Serious: No
  Sender: FDA-Public Use
  Company Number: None

PATIENT
  Age: 78 Year
  Sex: Female
  Weight: 68.0396 kg

DRUGS (1)
  1. ESTRING [Suspect]
     Indication: UTERINE PROLAPSE
     Dosage: 2 MG VAGINALLY INSERTED FOR 3 MOS
     Route: 067
     Dates: start: 20100703, end: 20101008

REACTIONS (5)
  - ALOPECIA [None]
  - DIZZINESS [None]
  - FEELING OF BODY TEMPERATURE CHANGE [None]
  - MALAISE [None]
  - VOMITING [None]
